FAERS Safety Report 19519675 (Version 1)
Quarter: 2021Q3

REPORT INFORMATION
  Report Type: Spontaneous
  Country: US (occurrence: US)
  Receive Date: 20210712
  Receipt Date: 20210712
  Transmission Date: 20211014
  Serious: Yes (Hospitalization)
  Sender: FDA-Public Use
  Company Number: US-BAYER-2021-167950

PATIENT
  Age: 49 Year
  Sex: Male

DRUGS (1)
  1. BILTRICIDE [Suspect]
     Active Substance: PRAZIQUANTEL
     Indication: CESTODE INFECTION
     Dosage: 600 MG
     Route: 048
     Dates: start: 20201103

REACTIONS (2)
  - Condition aggravated [Not Recovered/Not Resolved]
  - Abdominal pain upper [None]

NARRATIVE: CASE EVENT DATE: 202105
